FAERS Safety Report 9182353 (Version 1)
Quarter: 2012Q4

REPORT INFORMATION
  Report Type: Report from Study
  Country: JP (occurrence: JP)
  Receive Date: 20121030
  Receipt Date: 20121030
  Transmission Date: 20130627
  Serious: Yes (Hospitalization)
  Sender: FDA-Public Use
  Company Number: JP-VERTEX PHARMACEUTICAL INC.-2012-023650

PATIENT
  Age: 68 Year
  Sex: Female

DRUGS (5)
  1. VX-950 [Suspect]
     Indication: HEPATITIS C
     Dosage: 1500 mg, qd
     Route: 048
     Dates: start: 20120829, end: 20120925
  2. RIBAVIRIN [Suspect]
     Indication: HEPATITIS C
     Dosage: 400 mg, qd
     Route: 048
     Dates: start: 20120829, end: 20120925
  3. PEGINTERFERON ALFA-2B [Suspect]
     Indication: HEPATITIS C
     Dosage: 1.5 �g/kg, qw
     Route: 058
     Dates: start: 20120829, end: 20120905
  4. PEGINTERFERON ALFA-2B [Suspect]
     Dosage: 0.15 �g/kg, qw
     Route: 058
     Dates: start: 20120912, end: 20120926
  5. NORVASC [Concomitant]
     Dosage: 5 mg, qd
     Route: 048

REACTIONS (1)
  - Psychiatric symptom [Recovered/Resolved]
